FAERS Safety Report 4745437-6 (Version None)
Quarter: 2005Q3

REPORT INFORMATION
  Report Type: 
  Country: None (occurrence: None)
  Receive Date: 20050812
  Receipt Date: 20050803
  Transmission Date: 20060218
  Serious: Yes (Hospitalization)
  Sender: FDA-Public Use
  Company Number: TPA2005A00886

PATIENT
  Age: 42 Year
  Sex: Female

DRUGS (4)
  1. ACTOS [Suspect]
     Indication: DIABETES MELLITUS
     Dosage: 30 MG, 1 IN 1 SEC, PER ORAL
     Route: 048
     Dates: start: 20000101
  2. LANTUS (INSULIN GLARGINE) (42 IU (INTERNATNIONAL UNIT)) [Suspect]
     Indication: DIABETES MELLITUS
     Dosage: 42 IU, 2 IN 1 D
     Dates: start: 20030101, end: 20050201
  3. HUMULIN N [Suspect]
     Indication: DIABETES MELLITUS
     Dosage: SLIDING SCALE
     Dates: start: 19990101, end: 20050201
  4. LIPITOR [Concomitant]

REACTIONS (5)
  - BURNING SENSATION [None]
  - HYPERLIPIDAEMIA [None]
  - INJECTION SITE ERYTHEMA [None]
  - PAIN [None]
  - PANCREATITIS [None]
